FAERS Safety Report 15997192 (Version 2)
Quarter: 2022Q3

REPORT INFORMATION
  Report Type: Spontaneous
  Country: US (occurrence: US)
  Receive Date: 20190222
  Receipt Date: 20220711
  Transmission Date: 20221027
  Serious: Yes (Hospitalization, Other)
  Sender: FDA-Public Use
  Company Number: PHEH2019US007968

PATIENT
  Sex: Male

DRUGS (1)
  1. TASIGNA [Suspect]
     Active Substance: NILOTINIB
     Indication: Chronic myeloid leukaemia
     Dosage: 01 DF, BID
     Route: 048
     Dates: start: 201408, end: 201806

REACTIONS (11)
  - Hemiparesis [Unknown]
  - Cerebrovascular accident [Unknown]
  - Parkinson^s disease [Unknown]
  - Bursitis [Unknown]
  - Speech disorder [Unknown]
  - Injury [Unknown]
  - Dysphagia [Unknown]
  - Nausea [Unknown]
  - Arteriosclerosis [Unknown]
  - Pain [Unknown]
  - Emotional distress [Unknown]
